FAERS Safety Report 6501276-7 (Version None)
Quarter: 2009Q4

REPORT INFORMATION
  Report Type: 
  Country: None (occurrence: None)
  Receive Date: 20091216
  Receipt Date: 20091214
  Transmission Date: 20100525
  Serious: Yes (Disabling)
  Sender: FDA-Public Use
  Company Number: JP-SANOFI-AVENTIS-2009SA008593

PATIENT

DRUGS (1)
  1. CLEXANE [Suspect]
     Route: 058
     Dates: start: 20091210, end: 20091211

REACTIONS (1)
  - EXTRADURAL HAEMATOMA [None]
